FAERS Safety Report 11916857 (Version 2)
Quarter: 2016Q2

REPORT INFORMATION
  Report Type: Spontaneous
  Country: US (occurrence: US)
  Receive Date: 20160114
  Receipt Date: 20160407
  Transmission Date: 20160815
  Serious: Yes (Hospitalization)
  Sender: FDA-Public Use
  Company Number: US-PFIZER INC-2016009421

PATIENT
  Age: 69 Year
  Sex: Female
  Weight: 66.22 kg

DRUGS (1)
  1. LYRICA [Suspect]
     Active Substance: PREGABALIN
     Indication: HERPES ZOSTER
     Dosage: 75 MG, 3X/DAY
     Route: 048

REACTIONS (4)
  - Balance disorder [Recovered/Resolved]
  - Dizziness [Unknown]
  - Limb discomfort [Recovered/Resolved]
  - Muscular weakness [Unknown]

NARRATIVE: CASE EVENT DATE: 201601
